FAERS Safety Report 7575956-9 (Version None)
Quarter: 2011Q2

REPORT INFORMATION
  Report Type: 
  Country: None (occurrence: None)
  Receive Date: 20110628
  Receipt Date: 20091019
  Transmission Date: 20111010
  Serious: No
  Sender: FDA-Public Use
  Company Number: 2009BI033834

PATIENT
  Sex: Female

DRUGS (1)
  1. TYSABRI [Suspect]
     Indication: MULTIPLE SCLEROSIS
     Route: 042
     Dates: start: 20070920

REACTIONS (6)
  - COGNITIVE DISORDER [None]
  - MULTIPLE SCLEROSIS [None]
  - IMPULSIVE BEHAVIOUR [None]
  - COORDINATION ABNORMAL [None]
  - MEMORY IMPAIRMENT [None]
  - DRUG INEFFECTIVE [None]
